FAERS Safety Report 4735063-7 (Version None)
Quarter: 2005Q3

REPORT INFORMATION
  Report Type: 
  Country: None (occurrence: None)
  Receive Date: 20050804
  Receipt Date: 20050311
  Transmission Date: 20060218
  Serious: Yes (Hospitalization, Other)
  Sender: FDA-Public Use
  Company Number: US-MERCK-0503USA02565

PATIENT
  Age: 78 Year
  Sex: Female
  Weight: 66 kg

DRUGS (6)
  1. VIOXX [Suspect]
     Indication: ARTHRITIS
     Route: 048
     Dates: start: 20001001, end: 20020701
  2. VIOXX [Suspect]
     Route: 048
     Dates: start: 20040201
  3. PREMPRO [Concomitant]
     Route: 065
     Dates: start: 19970101, end: 20020101
  4. QUESTRAN [Concomitant]
     Route: 065
     Dates: start: 19970401, end: 20020101
  5. MYLANTA + MYLANTA DS [Concomitant]
     Route: 065
  6. PROTONIX [Concomitant]
     Route: 065
     Dates: start: 20020101

REACTIONS (22)
  - ACUTE PRERENAL FAILURE [None]
  - ANGINA PECTORIS [None]
  - ANGINA UNSTABLE [None]
  - ASTHENIA [None]
  - BACTERIA URINE IDENTIFIED [None]
  - BLOOD PRESSURE INCREASED [None]
  - CATARACT [None]
  - CELLULITIS [None]
  - DEMENTIA [None]
  - DEPRESSION [None]
  - EAR DISORDER [None]
  - EPISTAXIS [None]
  - HALLUCINATION [None]
  - HEADACHE [None]
  - HYPOKALAEMIA [None]
  - HYPONATRAEMIA [None]
  - MYOCARDIAL INFARCTION [None]
  - PLATELET AGGREGATION INCREASED [None]
  - PLEURAL EFFUSION [None]
  - SKIN LESION [None]
  - TACHYCARDIA [None]
  - URINE OUTPUT DECREASED [None]
